FAERS Safety Report 6155995-5 (Version None)
Quarter: 2009Q2

REPORT INFORMATION
  Report Type: 
  Country: None (occurrence: None)
  Receive Date: 20090410
  Receipt Date: 20090410
  Transmission Date: 20091009
  Serious: Yes (Life-Threatening, Hospitalization)
  Sender: FDA-Public Use
  Company Number: None

PATIENT
  Sex: Male
  Weight: 120.8 kg

DRUGS (14)
  1. TIZANIDINE HCL [Suspect]
     Indication: MUSCLE SPASTICITY
     Dosage: 4 MG AT BEDTIME PO
     Route: 048
     Dates: start: 20090306, end: 20090317
  2. AZATHIOPRINE [Concomitant]
  3. BISACODYL [Concomitant]
  4. CALCIUM GLUCONATE [Concomitant]
  5. CITALOPRAM HYDROBROMIDE [Concomitant]
  6. GABAPENTIN [Concomitant]
  7. HEPARIN [Concomitant]
  8. HYDROMORPHONE HCL [Concomitant]
  9. LACTULOSE [Concomitant]
  10. SCOPOLAMINE [Concomitant]
  11. QUETIAPINE [Concomitant]
  12. RANITIDINE [Concomitant]
  13. ROSUVASTATIN CALCIUM [Concomitant]
  14. TAMSULOSIN HCL [Concomitant]

REACTIONS (1)
  - BRADYCARDIA [None]
